FAERS Safety Report 9286638 (Version 1)
Quarter: 2013Q2

REPORT INFORMATION
  Report Type: Spontaneous
  Country: US (occurrence: US)
  Receive Date: 20130513
  Receipt Date: 20130513
  Transmission Date: 20140414
  Serious: Yes (Other)
  Sender: FDA-Public Use
  Company Number: GXBR2013US001031

PATIENT
  Age: 74 Year
  Sex: Female

DRUGS (2)
  1. LORATADINE TABLETS USP [Suspect]
     Indication: HYPERSENSITIVITY
     Dosage: 10 MG, PRN
     Route: 048
     Dates: start: 2009
  2. FLUOXETINE [Concomitant]
     Indication: DEPRESSION
     Dosage: UNK DF, UNK
     Route: 048

REACTIONS (3)
  - Glaucoma [Not Recovered/Not Resolved]
  - Cough [Not Recovered/Not Resolved]
  - Expired drug administered [Unknown]
